FAERS Safety Report 25721665 (Version 1)
Quarter: 2025Q3

REPORT INFORMATION
  Report Type: Spontaneous
  Country: US (occurrence: None)
  Receive Date: 20250823
  Receipt Date: 20250823
  Transmission Date: 20251021
  Serious: Yes (Hospitalization, Disabling, Other)
  Sender: FDA-CTU
  Company Number: None

PATIENT
  Age: 19 Year
  Sex: Female
  Weight: 54 kg

DRUGS (1)
  1. RISANKIZUMAB [Suspect]
     Active Substance: RISANKIZUMAB
     Indication: Psoriasis
     Dates: start: 20250301, end: 20250811

REACTIONS (5)
  - Cerebrovascular accident [None]
  - Embolic stroke [None]
  - Spinal cord infarction [None]
  - Quadriplegia [None]
  - Neurogenic shock [None]

NARRATIVE: CASE EVENT DATE: 20250811
